FAERS Safety Report 6653585-9 (Version None)
Quarter: 2010Q1

REPORT INFORMATION
  Report Type: 
  Country: None (occurrence: None)
  Receive Date: 20100326
  Receipt Date: 20100320
  Transmission Date: 20100710
  Serious: Yes (Hospitalization)
  Sender: FDA-Public Use
  Company Number: US-ELI_LILLY_AND_COMPANY-US201003006423

PATIENT
  Age: 69 Year
  Sex: Male

DRUGS (20)
  1. HUMULIN R [Suspect]
     Dosage: 200 U, EACH MORNING
  2. HUMULIN R [Suspect]
     Dosage: 40 U, OTHER
  3. HUMULIN R [Suspect]
     Dosage: 37 U, EACH EVENING
  4. LANTUS [Concomitant]
     Dosage: 62 U, EACH MORNING
  5. LANTUS [Concomitant]
     Dosage: 55 U, EACH EVENING
  6. FLEXERIL [Concomitant]
  7. GLUCOSE [Concomitant]
  8. LASIX [Concomitant]
  9. LORTAB [Concomitant]
  10. METOPROLOL [Concomitant]
  11. NEXIUM [Concomitant]
  12. NITROFURANTOIN [Concomitant]
  13. ALBUTEROL [Concomitant]
  14. AVODART [Concomitant]
  15. AMITRIPTYLINE [Concomitant]
  16. ANTIVERT [Concomitant]
  17. FERROUS SULFATE TAB [Concomitant]
  18. REQUIP [Concomitant]
  19. POTASSIUM [Concomitant]
  20. SYNTHROID [Concomitant]

REACTIONS (2)
  - INTERCEPTED MEDICATION ERROR [None]
  - URINARY TRACT INFECTION [None]
